FAERS Safety Report 10953140 (Version 1)
Quarter: 2015Q1

REPORT INFORMATION
  Report Type: Spontaneous
  Country: US (occurrence: US)
  Receive Date: 20150325
  Receipt Date: 20150325
  Transmission Date: 20150721
  Serious: No
  Sender: FDA-Public Use
  Company Number: US-MYLANLABS-2014M1000435

PATIENT
  Age: 74 Year
  Sex: Male
  Weight: 92.97 kg

DRUGS (5)
  1. LUPRON [Interacting]
     Active Substance: LEUPROLIDE ACETATE
     Dosage: 45 MG, ONCE
     Route: 030
     Dates: start: 20140106, end: 20140106
  2. NAPROXEN. [Interacting]
     Active Substance: NAPROXEN
     Indication: SPINAL OSTEOARTHRITIS
     Dosage: 440 MG, QD
     Dates: start: 2004
  3. CHLORTALIDONE [Suspect]
     Active Substance: CHLORTHALIDONE
     Dosage: 25 MG, QD
     Dates: start: 2004, end: 2007
  4. CHLORTALIDONE [Interacting]
     Active Substance: CHLORTHALIDONE
     Dosage: 50 MG, QD
     Dates: start: 2007
  5. ASPIRIN. [Interacting]
     Active Substance: ASPIRIN
     Indication: CEREBROVASCULAR ACCIDENT PROPHYLAXIS
     Dosage: 81 MG, QD
     Dates: start: 2004

REACTIONS (7)
  - Rash erythematous [Recovered/Resolved]
  - Skin burning sensation [Recovered/Resolved]
  - Hot flush [Not Recovered/Not Resolved]
  - Drug interaction [Not Recovered/Not Resolved]
  - Rash pruritic [Recovered/Resolved]
  - Pityriasis rosea [Not Recovered/Not Resolved]
  - Rash [Recovered/Resolved]

NARRATIVE: CASE EVENT DATE: 20140106
